FAERS Safety Report 19680647 (Version 1)
Quarter: 2021Q3

REPORT INFORMATION
  Report Type: Other
  Country: FR (occurrence: FR)
  Receive Date: 20210810
  Receipt Date: 20210810
  Transmission Date: 20211014
  Serious: No
  Sender: FDA-Public Use
  Company Number: FR-GW PHARMA-202108FRGW03832

PATIENT

DRUGS (1)
  1. EPIDYOLEX [Suspect]
     Active Substance: CANNABIDIOL
     Indication: ATYPICAL BENIGN PARTIAL EPILEPSY
     Dosage: UNK
     Route: 048
     Dates: start: 20201113, end: 20201120

REACTIONS (5)
  - Paradoxical drug reaction [Recovered/Resolved]
  - Condition aggravated [Recovered/Resolved]
  - Seizure [Recovered/Resolved]
  - Diarrhoea [Recovered/Resolved]
  - Nausea [Recovered/Resolved]

NARRATIVE: CASE EVENT DATE: 20201113
